FAERS Safety Report 8911099 (Version 1)
Quarter: 2012Q4

REPORT INFORMATION
  Report Type: Spontaneous
  Country: US (occurrence: None)
  Receive Date: 20121114
  Receipt Date: 20121114
  Transmission Date: 20130627
  Serious: No
  Sender: FDA-Public Use
  Company Number: None

PATIENT
  Age: 57 Year
  Sex: Female

DRUGS (7)
  1. CIPROFLOXACIN [Suspect]
     Dates: start: 20100802, end: 20100807
  2. ACETYLSALICYLIC ACID [Concomitant]
  3. DOCUSATE [Concomitant]
  4. ESOMEPRAZOLE [Concomitant]
  5. LISINOPRIL [Concomitant]
  6. LOVASTATIN [Concomitant]
  7. QUETIAPINE [Concomitant]

REACTIONS (11)
  - Abdominal pain [None]
  - Diarrhoea haemorrhagic [None]
  - Decreased appetite [None]
  - Fatigue [None]
  - Renal failure acute [None]
  - Aspartate aminotransferase increased [None]
  - Alanine aminotransferase increased [None]
  - Blood alkaline phosphatase increased [None]
  - Gamma-glutamyltransferase increased [None]
  - Encephalopathy [None]
  - Cholestasis [None]
